FAERS Safety Report 25648250 (Version 2)
Quarter: 2025Q3

REPORT INFORMATION
  Report Type: Spontaneous
  Country: JP (occurrence: JP)
  Receive Date: 20250806
  Receipt Date: 20250905
  Transmission Date: 20251020
  Serious: Yes (Other)
  Sender: SANDOZ
  Company Number: JP-GILEAD-2021-0520327

PATIENT
  Age: 64 Year
  Sex: Male

DRUGS (33)
  1. ACYCLOVIR [Suspect]
     Active Substance: ACYCLOVIR
     Indication: Prophylaxis
     Dosage: 250 MG, ONCE DAILY
     Route: 041
     Dates: start: 20130410, end: 20130416
  2. AMIKACIN SULFATE [Suspect]
     Active Substance: AMIKACIN SULFATE
     Indication: Product used for unknown indication
     Dosage: 1.2 G
     Route: 065
     Dates: start: 20130409, end: 20130409
  3. AMPHOTERICIN B [Suspect]
     Active Substance: AMPHOTERICIN B
     Indication: Product used for unknown indication
     Dosage: 200 MG, ONCE DAILY
     Route: 041
     Dates: start: 20130409, end: 20130409
  4. BARACLUDE [Suspect]
     Active Substance: ENTECAVIR
     Indication: Product used for unknown indication
     Dosage: 0.5 MG
     Route: 048
     Dates: start: 20130409, end: 20130708
  5. CEFEPIME HYDROCHLORIDE [Suspect]
     Active Substance: CEFEPIME HYDROCHLORIDE
     Indication: Sepsis
     Dosage: 2 G, ONCE DAILY
     Route: 041
     Dates: start: 20130326, end: 20130408
  6. CELLCEPT [Suspect]
     Active Substance: MYCOPHENOLATE MOFETIL
     Indication: Graft versus host disease
     Dosage: 1500 MG, QD, 500 MG, THRICE DAILY
     Route: 048
     Dates: start: 20130409, end: 20130518
  7. CELLCEPT [Suspect]
     Active Substance: MYCOPHENOLATE MOFETIL
     Indication: Prophylaxis
  8. CUBICIN [Suspect]
     Active Substance: DAPTOMYCIN
     Indication: Sepsis
     Dosage: 6 MG/KG, QD
     Route: 041
     Dates: start: 20130409, end: 20130418
  9. CUBICIN [Suspect]
     Active Substance: DAPTOMYCIN
     Dosage: 6 MG/KG, QD
     Route: 041
     Dates: start: 20130419, end: 20130422
  10. DIGOXIN [Suspect]
     Active Substance: DIGOXIN
     Indication: Atrial fibrillation
     Dosage: 250 UG, ONCE DAILY
     Route: 065
     Dates: start: 20130413, end: 20130413
  11. DIGOXIN [Suspect]
     Active Substance: DIGOXIN
     Indication: Prophylaxis
  12. FOSCAVIR [Suspect]
     Active Substance: FOSCARNET SODIUM
     Indication: Prophylaxis
     Route: 041
     Dates: start: 20130416, end: 20130521
  13. MICAFUNGIN SODIUM [Suspect]
     Active Substance: MICAFUNGIN SODIUM
     Indication: Product used for unknown indication
     Dosage: 150 MG
     Route: 041
     Dates: start: 20130410, end: 20130418
  14. FILGRASTIM [Suspect]
     Active Substance: FILGRASTIM
     Indication: Cytopenia
     Dosage: 0.3 MG, ONCE DAILY
     Route: 065
     Dates: start: 20130409, end: 20130426
  15. FILGRASTIM [Suspect]
     Active Substance: FILGRASTIM
     Indication: Transplant
  16. CARPERITIDE [Suspect]
     Active Substance: CARPERITIDE
     Indication: Product used for unknown indication
     Route: 041
     Dates: start: 20130411, end: 20130502
  17. JANUVIA [Suspect]
     Active Substance: SITAGLIPTIN PHOSPHATE
     Indication: Product used for unknown indication
     Dosage: 50 MG, ONCE DAILY
     Route: 048
     Dates: start: 20130409, end: 20140424
  18. LASIX [Suspect]
     Active Substance: FUROSEMIDE
     Indication: Product used for unknown indication
     Dosage: 20 MG, ONCE DAILY
     Route: 042
     Dates: start: 20130409, end: 20130426
  19. MAGNESIUM SULFATE [Suspect]
     Active Substance: MAGNESIUM SULFATE
     Indication: Product used for unknown indication
     Dosage: 20 MG, ONCE DAILY
     Route: 065
     Dates: start: 20130411, end: 20130501
  20. MEROPENEM [Suspect]
     Active Substance: MEROPENEM
     Indication: Product used for unknown indication
     Dosage: 1 G, Q12H, BID
     Route: 041
     Dates: start: 20130409
  21. NEO-MINOPHAGEN C [Suspect]
     Active Substance: AMMONIUM GLYCYRRHIZATE
     Indication: Product used for unknown indication
     Dosage: 60 ML,ONCE DAILY
     Route: 042
     Dates: start: 20130409, end: 20130509
  22. OMEPRAZOLE SODIUM [Suspect]
     Active Substance: OMEPRAZOLE SODIUM
     Indication: Prophylaxis
     Route: 042
     Dates: start: 20130409, end: 20130503
  23. PROGRAF [Suspect]
     Active Substance: TACROLIMUS
     Indication: Graft versus host disease
     Dosage: 0.1 MG/KG, ONCE DAILY
     Route: 041
     Dates: start: 20130409, end: 20130409
  24. PROGRAF [Suspect]
     Active Substance: TACROLIMUS
     Indication: Prophylaxis
  25. THROMBOMODULIN ALFA [Suspect]
     Active Substance: THROMBOMODULIN ALFA
     Indication: Thrombotic microangiopathy
     Dosage: 300 IU, ONCE DAILY
     Route: 041
     Dates: start: 20130419, end: 20130424
  26. SOLU-CORTEF [Suspect]
     Active Substance: HYDROCORTISONE SODIUM SUCCINATE
     Indication: Graft versus host disease
     Route: 065
     Dates: start: 20130410, end: 20130413
  27. SOLU-CORTEF [Suspect]
     Active Substance: HYDROCORTISONE SODIUM SUCCINATE
     Indication: Prophylaxis
  28. SOLU-MEDROL [Suspect]
     Active Substance: METHYLPREDNISOLONE SODIUM SUCCINATE
     Indication: Graft versus host disease
     Route: 042
     Dates: start: 20130421, end: 20130502
  29. SOLU-MEDROL [Suspect]
     Active Substance: METHYLPREDNISOLONE SODIUM SUCCINATE
     Indication: Prophylaxis
  30. TRANSAMIN [Suspect]
     Active Substance: TRANEXAMIC ACID
     Indication: Product used for unknown indication
     Route: 065
     Dates: start: 20130409, end: 20130412
  31. URSO [Suspect]
     Active Substance: URSODIOL
     Indication: Prophylaxis
     Dosage: 600 MG, QD, 200 MG, THRICE DAILY
     Route: 048
     Dates: start: 20130409, end: 20130409
  32. URSODIOL [Suspect]
     Active Substance: URSODIOL
     Indication: Product used for unknown indication
     Route: 065
  33. VFEND [Suspect]
     Active Substance: VORICONAZOLE
     Indication: Product used for unknown indication
     Dosage: 400 MG, Q4W, 200 MG, TWICE DAILY
     Route: 048
     Dates: start: 20130419, end: 20130517

REACTIONS (8)
  - Cardiac failure acute [Recovering/Resolving]
  - Thrombotic microangiopathy [Recovering/Resolving]
  - Weight increased [Recovering/Resolving]
  - Gamma-glutamyltransferase increased [Recovered/Resolved]
  - Blood urea increased [Recovering/Resolving]
  - Blood alkaline phosphatase increased [Recovering/Resolving]
  - Blood creatinine increased [Recovering/Resolving]
  - Drug ineffective [Unknown]
